FAERS Safety Report 13671566 (Version 1)
Quarter: 2017Q2

REPORT INFORMATION
  Report Type: Spontaneous
  Country: US (occurrence: US)
  Receive Date: 20170620
  Receipt Date: 20170620
  Transmission Date: 20170830
  Serious: No
  Sender: FDA-Public Use
  Company Number: US-ROCHE-1361282

PATIENT
  Sex: Female

DRUGS (2)
  1. XELODA [Suspect]
     Active Substance: CAPECITABINE
     Indication: BREAST CANCER
     Route: 048
     Dates: start: 20140210
  2. AROMASIN [Concomitant]
     Active Substance: EXEMESTANE

REACTIONS (4)
  - Fatigue [Unknown]
  - Vomiting [Unknown]
  - Influenza like illness [Unknown]
  - Nausea [Unknown]
